FAERS Safety Report 8026791-9 (Version None)
Quarter: 2012Q1

REPORT INFORMATION
  Report Type: 
  Country: None (occurrence: None)
  Receive Date: 20120106
  Receipt Date: 20111013
  Transmission Date: 20120608
  Serious: Yes (Other)
  Sender: FDA-Public Use
  Company Number: US-RB-028738-11

PATIENT
  Age: 80 Year
  Sex: Female

DRUGS (1)
  1. MUCINEX [Suspect]
     Indication: PRODUCT USED FOR UNKNOWN INDICATION
     Route: 048

REACTIONS (1)
  - BLOOD PRESSURE INCREASED [None]
